FAERS Safety Report 8533315-6 (Version None)
Quarter: 2012Q3

REPORT INFORMATION
  Report Type: 
  Country: None (occurrence: None)
  Receive Date: 20120717
  Receipt Date: 20120717
  Transmission Date: 20120928
  Serious: Yes (Other)
  Sender: FDA-Public Use
  Company Number: None

PATIENT
  Age: 78 Year
  Sex: Female
  Weight: 77.1115 kg

DRUGS (2)
  1. ZYVOX [Suspect]
     Indication: STAPHYLOCOCCAL INFECTION
     Dosage: 600MG BID PO
     Route: 048
     Dates: start: 20120706, end: 20120716
  2. ZYVOX [Suspect]
     Indication: PSEUDOMONAS INFECTION
     Dosage: 600MG BID PO
     Route: 048
     Dates: start: 20120706, end: 20120716

REACTIONS (8)
  - PHARYNGEAL ULCERATION [None]
  - DYSGEUSIA [None]
  - MOUTH ULCERATION [None]
  - TONGUE BLISTERING [None]
  - DECREASED APPETITE [None]
  - OESOPHAGEAL PAIN [None]
  - OROPHARYNGEAL BLISTERING [None]
  - TONGUE ULCERATION [None]
